FAERS Safety Report 14851811 (Version 1)
Quarter: 2018Q2

REPORT INFORMATION
  Report Type: Report from Study
  Country: US (occurrence: US)
  Receive Date: 20180507
  Receipt Date: 20180507
  Transmission Date: 20180711
  Serious: Yes (Hospitalization, Other)
  Sender: FDA-Public Use
  Company Number: US-CPL-000413

PATIENT
  Age: 86 Year
  Sex: Male

DRUGS (1)
  1. HYDRALAZINE/HYDRALAZINE HYDROCHLORIDE [Suspect]
     Active Substance: HYDRALAZINE HYDROCHLORIDE
     Indication: PRODUCT USED FOR UNKNOWN INDICATION
     Dosage: 100 MG TID, LESS THAN 12 MONTHS

REACTIONS (3)
  - Vasculitis necrotising [Recovered/Resolved]
  - Hypersensitivity vasculitis [Recovered/Resolved]
  - Myocarditis [Recovered/Resolved]
